FAERS Safety Report 10287308 (Version 5)
Quarter: 2016Q4

REPORT INFORMATION
  Report Type: Report from Study
  Country: AR (occurrence: AR)
  Receive Date: 20140709
  Receipt Date: 20161003
  Transmission Date: 20170206
  Serious: Yes (Death, Hospitalization, Other)
  Sender: FDA-Public Use
  Company Number: AR-BRISTOL-MYERS SQUIBB COMPANY-21156807

PATIENT
  Age: 65 Year
  Sex: Male

DRUGS (1)
  1. BELATACEPT [Suspect]
     Active Substance: BELATACEPT
     Indication: RENAL TRANSPLANT
     Dosage: UNK, Q4WK
     Route: 065
     Dates: start: 20131012

REACTIONS (6)
  - Death [Fatal]
  - Thrombosis [Recovered/Resolved]
  - Pleural effusion [Recovering/Resolving]
  - Wound [Not Recovered/Not Resolved]
  - Fall [Unknown]
  - Lung infection [Recovered/Resolved]

NARRATIVE: CASE EVENT DATE: 20140613
